FAERS Safety Report 9745805 (Version 1)
Quarter: 2013Q4

REPORT INFORMATION
  Report Type: Spontaneous
  Country: US (occurrence: None)
  Receive Date: 20131206
  Receipt Date: 20131206
  Transmission Date: 20140711
  Serious: No
  Sender: FDA-Public Use
  Company Number: None

PATIENT
  Age: 74 Year
  Sex: Male

DRUGS (1)
  1. NEXAVER 200MG BAYER [Suspect]
     Indication: HEPATIC CANCER
     Route: 048
     Dates: start: 20131016, end: 20131019

REACTIONS (1)
  - Dyspnoea [None]
